FAERS Safety Report 18264877 (Version 2)
Quarter: 2020Q4

REPORT INFORMATION
  Report Type: Spontaneous
  Country: JP (occurrence: JP)
  Receive Date: 20200914
  Receipt Date: 20201006
  Transmission Date: 20210113
  Serious: Yes (Death, Hospitalization, Other)
  Sender: FDA-Public Use
  Company Number: JP-PFIZER INC-2020348307

PATIENT
  Age: 76 Year
  Sex: Female
  Weight: 71 kg

DRUGS (2)
  1. RHEUMATREX [Suspect]
     Active Substance: METHOTREXATE SODIUM
     Indication: RHEUMATOID ARTHRITIS
     Dosage: UNK
     Route: 048
  2. RHEUMATREX [Suspect]
     Active Substance: METHOTREXATE SODIUM
     Dosage: 8 MG, WEEKLY
     Route: 048
     Dates: start: 20200801

REACTIONS (5)
  - Infection [Unknown]
  - Renal impairment [Unknown]
  - Mediastinum neoplasm [Unknown]
  - Pancytopenia [Fatal]
  - Urinary tract infection [Unknown]

NARRATIVE: CASE EVENT DATE: 202008
